FAERS Safety Report 10067286 (Version 5)
Quarter: 2014Q3

REPORT INFORMATION
  Report Type: Spontaneous
  Country: GB (occurrence: None)
  Receive Date: 20140407
  Receipt Date: 20140721
  Transmission Date: 20150326
  Serious: Yes (Death, Hospitalization, Other)
  Sender: FDA-Public Use
  Company Number: 2014092237

PATIENT
  Age: 23 Year
  Sex: Female
  Weight: 51.5 kg

DRUGS (4)
  1. FRAGMIN [Suspect]
     Active Substance: DALTEPARIN SODIUM
     Indication: MITRAL VALVE REPLACEMENT
     Dates: start: 20140123, end: 20140314
  2. FERROUS SULFATE [Concomitant]
     Active Substance: FERROUS SULFATE\FERROUS SULFATE, DRIED
  3. FRAGMIN [Suspect]
     Active Substance: DALTEPARIN SODIUM
     Indication: PROPHYLAXIS
     Dates: start: 20140123, end: 20140314
  4. FOLIC ACID (FOLIC ACID) [Concomitant]
     Active Substance: FOLIC ACID

REACTIONS (21)
  - Cerebrovascular accident [None]
  - Headache [None]
  - Therapeutic drug monitoring analysis not performed [None]
  - Fatigue [None]
  - Dyspnoea [None]
  - Intracardiac thrombus [None]
  - Foetal death [None]
  - Oxygen saturation decreased [None]
  - Rubella antibody positive [None]
  - Maternal exposure during pregnancy [None]
  - Maternal drugs affecting foetus [None]
  - Pneumonia [None]
  - Nasal congestion [None]
  - Body temperature increased [None]
  - Brain injury [None]
  - Cardiac arrest [None]
  - Cardiac valve replacement complication [None]
  - Abortion spontaneous [None]
  - Drug ineffective [None]
  - Off label use [None]
  - Productive cough [None]

NARRATIVE: CASE EVENT DATE: 20140123
